FAERS Safety Report 5593149-1 (Version None)
Quarter: 2008Q1

REPORT INFORMATION
  Report Type: 
  Country: None (occurrence: None)
  Receive Date: 20080116
  Receipt Date: 20080111
  Transmission Date: 20080703
  Serious: Yes (Other)
  Sender: FDA-Public Use
  Company Number: GB-JNJFOC-20080102724

PATIENT
  Age: 44 Year
  Sex: Female

DRUGS (7)
  1. HALOPERIDOL [Suspect]
     Indication: BIPOLAR DISORDER
     Route: 065
  2. HALOPERIDOL [Suspect]
     Indication: AGITATION
     Route: 065
  3. DIAZEPAM [Suspect]
     Indication: HOSTILITY
     Route: 065
  4. DIAZEPAM [Suspect]
     Indication: AGITATION
     Route: 065
  5. OLANZAPINE [Suspect]
     Indication: BIPOLAR DISORDER
     Route: 065
  6. SEMISODIUM VALPROATE [Suspect]
     Indication: BIPOLAR DISORDER
     Route: 065
  7. ZUCLOPENTHIXOL ACETATE [Suspect]
     Indication: HOSTILITY
     Route: 065

REACTIONS (4)
  - ABDOMINAL DISTENSION [None]
  - HYPERPROLACTINAEMIA [None]
  - SOMATIC DELUSION [None]
  - WEIGHT INCREASED [None]
